FAERS Safety Report 18044258 (Version 1)
Quarter: 2020Q3

REPORT INFORMATION
  Report Type: Spontaneous
  Country: US (occurrence: US)
  Receive Date: 20200720
  Receipt Date: 20200720
  Transmission Date: 20201103
  Serious: No
  Sender: FDA-Public Use
  Company Number: US-BEH-2020120222

PATIENT
  Sex: Female

DRUGS (4)
  1. CALCIUM + D3 [CALCIUM;COLECALCIFEROL] [Concomitant]
  2. HIZENTRA [Suspect]
     Active Substance: HUMAN IMMUNOGLOBULIN G
     Indication: SELECTIVE IGG SUBCLASS DEFICIENCY
     Dosage: 10 GRAM, QW
     Route: 058
     Dates: start: 2018
  3. SIMVASTATIN. [Concomitant]
     Active Substance: SIMVASTATIN
  4. VITAMIN B12 [VITAMIN B12 NOS] [Concomitant]
     Active Substance: CYANOCOBALAMIN

REACTIONS (2)
  - Headache [Recovered/Resolved]
  - Fatigue [Recovered/Resolved]
